FAERS Safety Report 14089423 (Version 4)
Quarter: 2018Q1

REPORT INFORMATION
  Report Type: Spontaneous
  Country: IE (occurrence: IE)
  Receive Date: 20171013
  Receipt Date: 20180308
  Transmission Date: 20180508
  Serious: Yes (Hospitalization)
  Sender: FDA-Public Use
  Company Number: IE-PFIZER INC-2017280722

PATIENT
  Age: 52 Year
  Sex: Male
  Weight: 53 kg

DRUGS (2)
  1. GENOTROPIN [Suspect]
     Active Substance: SOMATROPIN
     Indication: OSTEOPOROSIS
     Dosage: 0.3 MG, DAILY
     Route: 058
     Dates: start: 201706
  2. CALCICHEW [Concomitant]
     Active Substance: CALCIUM CARBONATE
     Indication: OSTEOPOROSIS
     Dosage: UNK
     Dates: start: 2013

REACTIONS (5)
  - Device issue [Unknown]
  - Weight increased [Not Recovered/Not Resolved]
  - Abdominal distension [Unknown]
  - Drug dose omission [Unknown]
  - Chest discomfort [Unknown]
